FAERS Safety Report 7325676-0 (Version None)
Quarter: 2011Q1

REPORT INFORMATION
  Report Type: 
  Country: None (occurrence: None)
  Receive Date: 20110302
  Receipt Date: 20110224
  Transmission Date: 20110831
  Serious: Yes (Hospitalization, Other)
  Sender: FDA-Public Use
  Company Number: US-PFIZER INC-2010144991

PATIENT
  Sex: Female

DRUGS (8)
  1. METOPROLOL [Concomitant]
     Indication: CHEST PAIN
  2. METOPROLOL [Concomitant]
     Indication: ANXIETY
  3. LOPRESSOR [Concomitant]
     Indication: BLOOD PRESSURE
     Dosage: UNK
     Dates: start: 19900101
  4. XANAX [Concomitant]
     Indication: ANXIETY
     Dosage: UNK
     Dates: start: 20030101, end: 20100101
  5. CHANTIX [Suspect]
     Indication: SMOKING CESSATION THERAPY
     Dosage: STARTER PACK AND CONTINUING PACK
     Dates: start: 20081103, end: 20090201
  6. METOPROLOL [Concomitant]
     Indication: HYPERTENSION
     Dosage: UNK
     Dates: start: 20030101, end: 20090101
  7. VALIUM [Concomitant]
     Indication: PAIN
     Dosage: UNK
     Dates: start: 20030101
  8. TRAMADOL [Concomitant]
     Indication: PAIN
     Dosage: UNK
     Dates: start: 20070101, end: 20090101

REACTIONS (15)
  - DELUSION [None]
  - HOMICIDAL IDEATION [None]
  - PARANOIA [None]
  - CONVULSION [None]
  - HALLUCINATION, VISUAL [None]
  - MENTAL STATUS CHANGES [None]
  - AMNESIA [None]
  - INSOMNIA [None]
  - ANXIETY [None]
  - SUICIDE ATTEMPT [None]
  - INTENTIONAL OVERDOSE [None]
  - DEPRESSION [None]
  - LOSS OF CONSCIOUSNESS [None]
  - MOOD SWINGS [None]
  - HALLUCINATION, AUDITORY [None]
